FAERS Safety Report 12285272 (Version 1)
Quarter: 2016Q2

REPORT INFORMATION
  Report Type: Report from Study
  Country: BR (occurrence: BR)
  Receive Date: 20160420
  Receipt Date: 20160420
  Transmission Date: 20160815
  Serious: Yes (Other)
  Sender: FDA-Public Use
  Company Number: PHHY2016BR052035

PATIENT
  Sex: Male
  Weight: 84 kg

DRUGS (1)
  1. FORASEQ [Suspect]
     Active Substance: BUDESONIDE\FORMOTEROL FUMARATE
     Indication: EMPHYSEMA
     Dosage: 2 DF, BID (2 CAPSULES IN MORNING AND 2 AT NIGHT)
     Route: 055

REACTIONS (3)
  - Deafness [Unknown]
  - Emphysema [Unknown]
  - Hypoacusis [Unknown]
